FAERS Safety Report 18040631 (Version 1)
Quarter: 2020Q3

REPORT INFORMATION
  Report Type: Spontaneous
  Country: RO (occurrence: RO)
  Receive Date: 20200717
  Receipt Date: 20200717
  Transmission Date: 20201103
  Serious: Yes (Other)
  Sender: FDA-Public Use
  Company Number: RO-BAUSCH-BL-2020-019790

PATIENT
  Sex: Female

DRUGS (9)
  1. DEPAKIN [Suspect]
     Active Substance: VALPROATE SODIUM
     Indication: PSYCHOTIC DISORDER
     Dosage: 300 (UNITS UNKNOWN), IN THE MORNING
     Route: 065
  2. DIAZEPAM. [Suspect]
     Active Substance: DIAZEPAM
     Indication: PSYCHOTIC DISORDER
     Dosage: 10 (UNITS UNKNOWN), IN THE EVENING
     Route: 065
  3. DEPAKIN [Suspect]
     Active Substance: VALPROATE SODIUM
     Indication: SCHIZOPHRENIA
     Dosage: 150 (UNITS UNKNOWN), IN THE EVENING
     Route: 065
  4. RISPERIDONE. [Suspect]
     Active Substance: RISPERIDONE
     Indication: PSYCHOTIC DISORDER
     Dosage: 2 MILLILITER, IN THE MORNING AND IN THE EVENING
     Route: 065
  5. RIVOTRIL [Suspect]
     Active Substance: CLONAZEPAM
     Indication: SCHIZOPHRENIA
     Route: 065
  6. GERODORM [Suspect]
     Active Substance: CINOLAZEPAM
     Indication: SCHIZOPHRENIA
     Dosage: HALF
     Route: 065
  7. ROMPARKIN [Suspect]
     Active Substance: TRIHEXYPHENIDYL
     Indication: SCHIZOPHRENIA
     Dosage: IN THE EVENING
     Route: 065
  8. ROMPARKIN [Suspect]
     Active Substance: TRIHEXYPHENIDYL
     Indication: PSYCHOTIC DISORDER
     Dosage: IN THE MORNING AND IN THE EVENING
     Route: 065
  9. OLANZAPINE. [Suspect]
     Active Substance: OLANZAPINE
     Indication: SCHIZOPHRENIA
     Dosage: IN THE EVENING
     Route: 065

REACTIONS (5)
  - Drug ineffective [Unknown]
  - Dysstasia [Unknown]
  - Gait disturbance [Unknown]
  - Aphasia [Unknown]
  - Sedation [Unknown]
